FAERS Safety Report 5076029-X (Version None)
Quarter: 2006Q3

REPORT INFORMATION
  Report Type: 
  Country: None (occurrence: None)
  Receive Date: 20060809
  Receipt Date: 20060803
  Transmission Date: 20061208
  Serious: Yes (Life-Threatening, Hospitalization)
  Sender: FDA-Public Use
  Company Number: AU-BOEHRINGER INGELHEIM PHARMACEUTICALS, INC.-2006-BP-08896AU

PATIENT
  Sex: Male

DRUGS (4)
  1. MOBIC [Suspect]
     Route: 048
  2. ASPIRIN [Suspect]
     Route: 048
  3. ALCOHOL [Suspect]
     Route: 048
  4. THIAMINE [Concomitant]
     Route: 042

REACTIONS (3)
  - HAEMOGLOBIN DECREASED [None]
  - HYPERHIDROSIS [None]
  - MELAENA [None]
